FAERS Safety Report 9666637 (Version 1)
Quarter: 2013Q4

REPORT INFORMATION
  Report Type: Spontaneous
  Country: US (occurrence: US)
  Receive Date: 20131104
  Receipt Date: 20131104
  Transmission Date: 20140711
  Serious: Yes (Other)
  Sender: FDA-Public Use
  Company Number: US-SHIRE-ALL1-2013-07451

PATIENT
  Age: 16 Year
  Sex: Female

DRUGS (2)
  1. VYVANSE [Suspect]
     Indication: PRODUCT USED FOR UNKNOWN INDICATION
     Dosage: UNK(INGESTED 6-8 60 MG CAPSULES), ONE DOSE
     Route: 048
  2. VYVANSE [Suspect]
     Dosage: 60 MG, UNKNOWN
     Route: 048

REACTIONS (2)
  - Intentional overdose [Unknown]
  - No adverse event [Unknown]
